FAERS Safety Report 8397913-5 (Version None)
Quarter: 2012Q2

REPORT INFORMATION
  Report Type: 
  Country: None (occurrence: None)
  Receive Date: 20120531
  Receipt Date: 20120529
  Transmission Date: 20120825
  Serious: Yes (Other)
  Sender: FDA-Public Use
  Company Number: PHHY2012NL017043

PATIENT
  Sex: Female

DRUGS (9)
  1. DENOSUMAB [Suspect]
  2. KEPPRA [Concomitant]
  3. ZOMETA [Suspect]
     Dosage: 4 MG/ 100 ML ONCE PER 28 DAYS
     Dates: start: 20120223
  4. ACETAMINOPHEN [Concomitant]
     Dosage: 4 DD
  5. ZOMETA [Suspect]
     Indication: METASTASES TO BONE
     Dosage: 4 MG/ 100 ML ONCE PER 28 DAYS
     Dates: start: 20120127
  6. PANTOPRAZOLE [Concomitant]
  7. DEXAMETHASONE [Concomitant]
  8. OXYNORM [Concomitant]
  9. GEFITINIB [Concomitant]

REACTIONS (3)
  - PYREXIA [None]
  - MALAISE [None]
  - PULMONARY EMBOLISM [None]
